FAERS Safety Report 6169002-1 (Version None)
Quarter: 2009Q2

REPORT INFORMATION
  Report Type: 
  Country: None (occurrence: None)
  Receive Date: 20090427
  Receipt Date: 20090414
  Transmission Date: 20091009
  Serious: Yes (Hospitalization)
  Sender: FDA-Public Use
  Company Number: AU-PFIZER INC-2009174759

PATIENT

DRUGS (8)
  1. ZELDOX [Suspect]
     Indication: SCHIZOPHRENIA
     Dosage: FREQUENCY: DAILY;
     Route: 048
     Dates: start: 20071122, end: 20080408
  2. SEROQUEL [Suspect]
     Indication: SCHIZOPHRENIA
     Dosage: UNK
     Route: 048
     Dates: start: 20080401
  3. OLANZAPINE [Concomitant]
     Dosage: UNK
  4. VALIUM [Concomitant]
     Dosage: UNK
  5. EFFEXOR [Concomitant]
     Dosage: UNK
  6. EDRONAX [Concomitant]
     Indication: DEPRESSION
     Dosage: 4 MG, UNK
     Route: 048
  7. EPILIM [Concomitant]
     Indication: DEPRESSION
     Dosage: 500 MG, 2X/DAY
     Route: 048
  8. DURAGESIC-100 [Concomitant]
     Indication: BACK PAIN
     Dosage: UNK ML, 3X/DAY
     Route: 061

REACTIONS (4)
  - DYSARTHRIA [None]
  - DYSPHAGIA [None]
  - TONGUE DISORDER [None]
  - TRISMUS [None]
